FAERS Safety Report 4287978-4 (Version None)
Quarter: 2004Q1

REPORT INFORMATION
  Report Type: 
  Country: None (occurrence: None)
  Receive Date: 20040205
  Receipt Date: 20040115
  Transmission Date: 20041129
  Serious: No
  Sender: FDA-Public Use
  Company Number: A01200400206

PATIENT
  Age: 67 Year
  Sex: Female

DRUGS (1)
  1. PLAQUENIL [Suspect]
     Indication: RHEUMATOID ARTHRITIS
     Dosage: 200 MG TID; UNKNOWN

REACTIONS (2)
  - ATRIOVENTRICULAR BLOCK COMPLETE [None]
  - DEVICE FAILURE [None]
